FAERS Safety Report 12971492 (Version 1)
Quarter: 2016Q4

REPORT INFORMATION
  Report Type: Spontaneous
  Country: US (occurrence: US)
  Receive Date: 20161123
  Receipt Date: 20161123
  Transmission Date: 20170207
  Serious: No
  Sender: FDA-Public Use
  Company Number: US-JAZZ-2016-US-020125

PATIENT
  Sex: Female

DRUGS (21)
  1. ETODOLAC. [Concomitant]
     Active Substance: ETODOLAC
  2. SPIRONOLACTONE. [Concomitant]
     Active Substance: SPIRONOLACTONE
  3. MAXALT-MLT [Concomitant]
     Active Substance: RIZATRIPTAN BENZOATE
  4. ISOMETHEPTENE DICHLORAL APAP [Concomitant]
  5. NUVIGIL [Concomitant]
     Active Substance: ARMODAFINIL
  6. XYREM [Suspect]
     Active Substance: SODIUM OXYBATE
     Indication: NARCOLEPSY
     Dosage: 3.5 G, BID
     Route: 048
     Dates: start: 201309, end: 2014
  7. XYREM [Suspect]
     Active Substance: SODIUM OXYBATE
     Dosage: 3.75 G, BID
     Route: 048
     Dates: start: 201601
  8. BACTRIM DS [Concomitant]
     Active Substance: SULFAMETHOXAZOLE\TRIMETHOPRIM
  9. DEXTROAMPHETAMINE                  /00016601/ [Concomitant]
     Active Substance: DEXTROAMPHETAMINE
  10. IMITREX                            /01044802/ [Concomitant]
  11. MULTIVITAMINS                      /07504101/ [Concomitant]
  12. XYREM [Suspect]
     Active Substance: SODIUM OXYBATE
     Indication: CATAPLEXY
     Dosage: DOSE ADJUSTMENT
     Route: 048
     Dates: start: 2014, end: 201512
  13. CIPROFLOXACIN HCL [Concomitant]
     Active Substance: CIPROFLOXACIN HYDROCHLORIDE
  14. SKYLA [Concomitant]
     Active Substance: LEVONORGESTREL
  15. FLUTICASONE PROPIONATE. [Concomitant]
     Active Substance: FLUTICASONE PROPIONATE
  16. CEPHALEXIN                         /00145501/ [Concomitant]
     Active Substance: CEPHALEXIN
  17. ACETAMINOPHEN. [Concomitant]
     Active Substance: ACETAMINOPHEN
  18. CHLORHEXIDINE [Concomitant]
     Active Substance: CHLORHEXIDINE
  19. METHYLPREDNISOLONE. [Concomitant]
     Active Substance: METHYLPREDNISOLONE
  20. NUVARING [Concomitant]
     Active Substance: ETHINYL ESTRADIOL\ETONOGESTREL
  21. IBUPROFEN. [Concomitant]
     Active Substance: IBUPROFEN

REACTIONS (1)
  - Dysmenorrhoea [Unknown]
